FAERS Safety Report 7250212-7 (Version None)
Quarter: 2011Q1

REPORT INFORMATION
  Report Type: 
  Country: None (occurrence: None)
  Receive Date: 20110128
  Receipt Date: 20110112
  Transmission Date: 20110831
  Serious: Yes (Other)
  Sender: FDA-Public Use
  Company Number: HU-BAYER-2010-008880

PATIENT
  Age: 60 Year
  Sex: Female

DRUGS (6)
  1. SORAFENIB (RAF KINASE INHIBITOR) [Suspect]
     Indication: HEPATIC NEOPLASM MALIGNANT
     Dosage: DAILY DOSE 800 MG
     Route: 048
     Dates: start: 20101214, end: 20101228
  2. MEPROBAMATE [Concomitant]
     Dosage: DAILY DOSE 400 MG
     Route: 048
     Dates: start: 20100420
  3. PANTOPRAZOLE [Concomitant]
     Dosage: DAILY DOSE 80 MG
     Route: 048
     Dates: start: 20100420
  4. SILYMARIN [Concomitant]
     Dosage: DAILY DOSE 420 MG
     Route: 048
     Dates: start: 20100909
  5. SPIRONOLACTONE [Concomitant]
     Dosage: DAILY DOSE 150 MG
     Route: 048
     Dates: start: 20100909
  6. PROPRANOLOL [Concomitant]
     Dosage: DAILY DOSE 80 MG
     Route: 048
     Dates: start: 20100420

REACTIONS (2)
  - HEPATIC FUNCTION ABNORMAL [None]
  - JAUNDICE [None]
